FAERS Safety Report 7008123-8 (Version None)
Quarter: 2010Q3

REPORT INFORMATION
  Report Type: 
  Country: None (occurrence: None)
  Receive Date: 20100917
  Receipt Date: 20100908
  Transmission Date: 20110219
  Serious: Yes (Other)
  Sender: FDA-Public Use
  Company Number: 2009SP028557

PATIENT
  Age: 32 Year
  Sex: Female
  Weight: 56 kg

DRUGS (5)
  1. NUVARING [Suspect]
     Indication: CONTRACEPTION
     Dosage: VAG
     Route: 067
     Dates: start: 20090101
  2. DICLOFENAC SODIUM [Suspect]
     Indication: PRODUCT USED FOR UNKNOWN INDICATION
     Dosage: PO
     Route: 048
  3. MONUROL [Suspect]
     Indication: NEPHROLITHIASIS
     Dosage: PO
     Route: 048
     Dates: start: 20090101
  4. AZYTHROMICIN (AZITHROMYCIN) [Suspect]
     Indication: PRODUCT USED FOR UNKNOWN INDICATION
  5. DECADRON (DEXAMETHASONE PHOSPHATE) (DEXAMETHASONE PHOSPHATE) [Suspect]
     Indication: PRODUCT USED FOR UNKNOWN INDICATION
     Dates: start: 20100825, end: 20100901

REACTIONS (3)
  - DRUG INTERACTION [None]
  - NEPHROLITHIASIS [None]
  - SINUSITIS [None]
